FAERS Safety Report 5960030-5 (Version None)
Quarter: 2008Q4

REPORT INFORMATION
  Report Type: 
  Country: None (occurrence: None)
  Receive Date: 20081120
  Receipt Date: 20081114
  Transmission Date: 20090506
  Serious: Yes (Hospitalization)
  Sender: FDA-Public Use
  Company Number: FR-GENENTECH-271717

PATIENT
  Age: 50 Year
  Sex: Male

DRUGS (1)
  1. RAPTIVA [Suspect]
     Indication: PSORIASIS
     Dosage: UNK
     Dates: end: 20081001

REACTIONS (3)
  - LYMPHOMA [None]
  - MYOCARDITIS [None]
  - PERICARDITIS [None]
